FAERS Safety Report 13739175 (Version 1)
Quarter: 2017Q3

REPORT INFORMATION
  Report Type: Report from Study
  Country: US (occurrence: US)
  Receive Date: 20170710
  Receipt Date: 20170710
  Transmission Date: 20171127
  Serious: Yes (Other)
  Sender: FDA-Public Use
  Company Number: US-SAOL THERAPEUTICS-2017SAO00977

PATIENT
  Age: 40 Year
  Sex: Female
  Weight: 95.24 kg

DRUGS (16)
  1. BACLOFEN. [Suspect]
     Active Substance: BACLOFEN
     Indication: INTERVERTEBRAL DISC PROTRUSION
     Dosage: 58.15 ?G, UNK
     Route: 037
     Dates: start: 20170530, end: 20170607
  2. CLONIDINE. [Suspect]
     Active Substance: CLONIDINE
     Dosage: 13.088 ?G \DAY
     Route: 037
     Dates: start: 20170607
  3. HYDROMORPHONE [Suspect]
     Active Substance: HYDROMORPHONE
     Dosage: .880 MG \DAY
     Route: 037
     Dates: start: 20170607
  4. BACLOFEN. [Suspect]
     Active Substance: BACLOFEN
     Indication: COMPLEX REGIONAL PAIN SYNDROME
     Dosage: 36.45 ?G, \DAY
     Route: 037
     Dates: start: 20170607
  5. HYDROMORPHONE [Suspect]
     Active Substance: HYDROMORPHONE
     Dosage: 1.4050 MG\DAY
     Route: 037
     Dates: start: 20170530, end: 20170607
  6. FENTANYL. [Suspect]
     Active Substance: FENTANYL
     Dosage: 969.2 ?G \DAY
     Route: 037
     Dates: start: 20170530, end: 20170607
  7. FENTANYL. [Suspect]
     Active Substance: FENTANYL
     Dosage: 607.5 ?G, \DAY
     Route: 037
     Dates: start: 20170607
  8. CLONIDINE. [Suspect]
     Active Substance: CLONIDINE
     Dosage: 14.539 ?G, \DAY
     Route: 037
     Dates: start: 20170530, end: 20170607
  9. BACLOFEN. [Suspect]
     Active Substance: BACLOFEN
     Indication: PAIN
     Dosage: 40.51 ?G, \DAY
     Route: 037
     Dates: start: 20170530, end: 20170607
  10. FENTANYL. [Suspect]
     Active Substance: FENTANYL
     Dosage: 872.5 ?G, \DAY
     Route: 037
     Dates: start: 20170607
  11. CLONIDINE. [Suspect]
     Active Substance: CLONIDINE
     Dosage: 9.112 ?G, \DAY
     Dates: start: 20170607
  12. HYDROMORPHONE [Suspect]
     Active Substance: HYDROMORPHONE
     Dosage: 1.265 MG, \DAY
     Route: 037
     Dates: start: 20170607
  13. FENTANYL. [Suspect]
     Active Substance: FENTANYL
     Dosage: 675.2 ?G, \DAY
     Route: 037
     Dates: start: 20170530, end: 20170607
  14. BACLOFEN. [Suspect]
     Active Substance: BACLOFEN
     Dosage: 52.35 ?G, \DAY
     Route: 037
     Dates: start: 20170607
  15. CLONIDINE. [Suspect]
     Active Substance: CLONIDINE
     Dosage: 10.127 ?G, \DAY
     Route: 037
     Dates: start: 20170530, end: 20170607
  16. HYDROMORPHONE [Suspect]
     Active Substance: HYDROMORPHONE
     Dosage: 0.9790 MG\DAY
     Route: 037
     Dates: start: 20170530, end: 20170607

REACTIONS (4)
  - Malaise [Unknown]
  - Off label use [Unknown]
  - Pain [Unknown]
  - Device alarm issue [Recovered/Resolved]

NARRATIVE: CASE EVENT DATE: 20170530
